FAERS Safety Report 7750689-4 (Version None)
Quarter: 2011Q3

REPORT INFORMATION
  Report Type: 
  Country: None (occurrence: None)
  Receive Date: 20110914
  Receipt Date: 20110831
  Transmission Date: 20111222
  Serious: Yes (Other)
  Sender: FDA-Public Use
  Company Number: US-CELGENEUS-163-20785-11090309

PATIENT

DRUGS (3)
  1. THALOMID [Suspect]
     Dosage: INCREASE BY 100MG WEEKLY TO 800MG
     Route: 048
  2. PROCARBAZINE HYDROCHLORIDE [Suspect]
     Indication: MALIGNANT GLIOMA
     Dosage: 250 MILLIGRAM/SQ. METER
     Route: 048
  3. THALOMID [Suspect]
     Indication: MALIGNANT GLIOMA
     Dosage: 200 MILLIGRAM
     Route: 048

REACTIONS (12)
  - NEUTROPENIA [None]
  - DEPRESSION [None]
  - DEEP VEIN THROMBOSIS [None]
  - LEUKOPENIA [None]
  - FATIGUE [None]
  - MENTAL IMPAIRMENT [None]
  - SOMNOLENCE [None]
  - APHASIA [None]
  - VISUAL IMPAIRMENT [None]
  - ASTHENIA [None]
  - CONSTIPATION [None]
  - NEUROPATHY PERIPHERAL [None]
